FAERS Safety Report 6466746-9 (Version None)
Quarter: 2009Q4

REPORT INFORMATION
  Report Type: 
  Country: None (occurrence: None)
  Receive Date: 20091202
  Receipt Date: 20091120
  Transmission Date: 20100525
  Serious: Yes (Hospitalization, Other)
  Sender: FDA-Public Use
  Company Number: FR-ELI_LILLY_AND_COMPANY-FR200911005237

PATIENT
  Sex: Female

DRUGS (18)
  1. ALIMTA [Suspect]
     Dosage: 840 MG, OTHER
     Route: 042
     Dates: start: 20081021, end: 20081021
  2. ALIMTA [Suspect]
     Dosage: 850 MG, OTHER
     Route: 042
     Dates: start: 20081112, end: 20081112
  3. ALIMTA [Suspect]
     Dosage: 860 MG, OTHER
     Route: 042
     Dates: start: 20081204, end: 20081204
  4. ALIMTA [Suspect]
     Dosage: 875 MG, OTHER
     Route: 042
     Dates: start: 20090107, end: 20090107
  5. ALIMTA [Suspect]
     Dosage: 880 MG, OTHER
     Route: 042
     Dates: start: 20090303, end: 20090303
  6. ALIMTA [Suspect]
     Dosage: 720 MG, OTHER
     Route: 042
     Dates: start: 20090716, end: 20090716
  7. ADVAGRAF [Concomitant]
     Dosage: 1 MG, 2/D
     Route: 048
  8. CELLCEPT [Concomitant]
     Dosage: 500 MG, 4/D
     Route: 048
     Dates: end: 20090801
  9. CERTICAN [Concomitant]
     Dosage: 1.25 MG, 2/D
     Route: 048
  10. ASPEGIC 1000 [Concomitant]
     Dosage: 100 MG, DAILY (1/D)
  11. ATARAX [Concomitant]
     Dosage: 100 MG, DAILY (1/D)
  12. LEVOTHYROXINE SODIUM [Concomitant]
     Dosage: 125 UG, DAILY (1/D)
  13. NOCTAMIDE [Concomitant]
     Dosage: 2 MG, DAILY (1/D)
  14. DURAGESIC-100 [Concomitant]
     Dosage: 25 UG, EVERY 72 HOURS
  15. COUMADIN [Concomitant]
     Dosage: 2 MG, 2/D
  16. RANITIDINE HCL [Concomitant]
     Dosage: 300 MG, DAILY (1/D)
  17. HALDOL [Concomitant]
     Dosage: 0.5 D/F, DAILY (1/D)
  18. CRESTOR [Concomitant]
     Dosage: 20 MG, DAILY (1/D)

REACTIONS (5)
  - FEBRILE NEUTROPENIA [None]
  - MALIGNANT NEOPLASM PROGRESSION [None]
  - PNEUMONIA [None]
  - RENAL FAILURE [None]
  - THROMBOCYTOPENIA [None]
